FAERS Safety Report 21340778 (Version 1)
Quarter: 2022Q3

REPORT INFORMATION
  Report Type: Spontaneous
  Country: US (occurrence: US)
  Receive Date: 20220916
  Receipt Date: 20220916
  Transmission Date: 20221027
  Serious: No
  Sender: FDA-Public Use
  Company Number: US-BIOGEN-2022BI01155179

PATIENT
  Sex: Male

DRUGS (5)
  1. VUMERITY [Suspect]
     Active Substance: DIROXIMEL FUMARATE
     Indication: Multiple sclerosis
     Dosage: TAKE 2 CAPSULE(S) (462 MG) BY MOUTH TWICE DAILY
     Route: 050
  2. CBD KINGS [Concomitant]
     Route: 050
  3. VICKS NYQUIL [Concomitant]
     Active Substance: ACETAMINOPHEN\DEXTROMETHORPHAN HYDROBROMIDE\DOXYLAMINE SUCCINATE
     Route: 050
  4. PROZAC [Concomitant]
     Active Substance: FLUOXETINE HYDROCHLORIDE
     Route: 050
  5. NICOTINE [Concomitant]
     Active Substance: NICOTINE
     Route: 050

REACTIONS (1)
  - Amnesia [Unknown]
